FAERS Safety Report 5000293-6 (Version None)
Quarter: 2006Q2

REPORT INFORMATION
  Report Type: 
  Country: None (occurrence: None)
  Receive Date: 20060511
  Receipt Date: 20050324
  Transmission Date: 20061013
  Serious: Yes (Hospitalization)
  Sender: FDA-Public Use
  Company Number: US-MERCK-0503USA04789

PATIENT
  Age: 68 Year
  Sex: Female
  Weight: 78 kg

DRUGS (7)
  1. VIOXX [Suspect]
     Indication: OSTEOARTHRITIS
     Route: 048
     Dates: start: 19990818, end: 20020514
  2. ASPIRIN [Concomitant]
     Route: 065
  3. ATENOLOL [Concomitant]
     Route: 065
  4. ALTACE [Concomitant]
     Route: 065
  5. ULTRAM [Concomitant]
     Route: 065
  6. PREMPRO [Concomitant]
     Route: 065
  7. ZOCOR [Concomitant]
     Route: 065

REACTIONS (12)
  - ACUTE MYOCARDIAL INFARCTION [None]
  - ANGINA UNSTABLE [None]
  - ASTHENIA [None]
  - CHEST PAIN [None]
  - CORONARY ARTERY DISEASE [None]
  - CORONARY ARTERY THROMBOSIS [None]
  - COUGH [None]
  - DIZZINESS [None]
  - DYSPNOEA [None]
  - HYPOTENSION [None]
  - LABILE HYPERTENSION [None]
  - MUSCULOSKELETAL CHEST PAIN [None]
